FAERS Safety Report 18312559 (Version 1)
Quarter: 2020Q3

REPORT INFORMATION
  Report Type: Spontaneous
  Country: US (occurrence: US)
  Receive Date: 20200925
  Receipt Date: 20200925
  Transmission Date: 20201103
  Serious: No
  Sender: FDA-Public Use
  Company Number: US-AKRON, INC.-2091154

PATIENT
  Age: 5 Year
  Sex: Female

DRUGS (1)
  1. ATROPINE SULFATE OPHTHALMIC SOLN. [Suspect]
     Active Substance: ATROPINE SULFATE
     Indication: AMBLYOPIA
     Route: 047

REACTIONS (2)
  - Eye irritation [Recovered/Resolved]
  - Rash [Recovered/Resolved]
